FAERS Safety Report 25676182 (Version 1)
Quarter: 2025Q3

REPORT INFORMATION
  Report Type: Spontaneous
  Country: US (occurrence: US)
  Receive Date: 20250813
  Receipt Date: 20250813
  Transmission Date: 20251021
  Serious: No
  Sender: ANI
  Company Number: US-ANIPHARMA-2025-US-027369

PATIENT
  Age: 67 Year
  Sex: Female
  Weight: 78.47 kg

DRUGS (2)
  1. ARIMIDEX [Suspect]
     Active Substance: ANASTROZOLE
     Indication: Product used for unknown indication
     Route: 048
     Dates: start: 202411
  2. LEVOTHYROXINE [Concomitant]
     Active Substance: LEVOTHYROXINE

REACTIONS (2)
  - Musculoskeletal stiffness [Not Recovered/Not Resolved]
  - Pain [Not Recovered/Not Resolved]

NARRATIVE: CASE EVENT DATE: 20250201
